FAERS Safety Report 6388882-8 (Version None)
Quarter: 2009Q4

REPORT INFORMATION
  Report Type: 
  Country: None (occurrence: None)
  Receive Date: 20091001
  Receipt Date: 20090916
  Transmission Date: 20100525
  Serious: Yes (Other)
  Sender: FDA-Public Use
  Company Number: 001851

PATIENT
  Age: 53 Year
  Sex: Female

DRUGS (2)
  1. VIMPAT [Suspect]
     Indication: CONVULSION
  2. VALPROATE SODIUM [Concomitant]

REACTIONS (1)
  - HEMIPARESIS [None]
